FAERS Safety Report 6922655-X (Version None)
Quarter: 2010Q3

REPORT INFORMATION
  Report Type: 
  Country: None (occurrence: None)
  Receive Date: 20100813
  Receipt Date: 20100802
  Transmission Date: 20110219
  Serious: Yes (Other)
  Sender: FDA-Public Use
  Company Number: PHHY2010BR51386

PATIENT
  Sex: Male

DRUGS (3)
  1. DIOVAN HCT [Suspect]
     Dosage: 160/12.5 MG
  2. RIVOTRIL [Suspect]
     Dosage: 2 MG, UNK
  3. NATAL [Concomitant]
     Dosage: 2 MG, UNK

REACTIONS (5)
  - CARDIOMEGALY [None]
  - HYPERTENSION [None]
  - INSOMNIA [None]
  - NECK PAIN [None]
  - PALPITATIONS [None]
